FAERS Safety Report 5674330-X (Version None)
Quarter: 2008Q2

REPORT INFORMATION
  Report Type: 
  Country: None (occurrence: None)
  Receive Date: 20080229
  Receipt Date: 20071003
  Transmission Date: 20081010
  Serious: Yes (Other)
  Sender: FDA-Public Use
  Company Number: 248848

PATIENT
  Age: 8 Year
  Sex: Female
  Weight: 22.5 kg

DRUGS (1)
  1. NUTROPIN AQ [Suspect]
     Indication: MOTOR NEURONE DISEASE
     Dosage: 1 MG,7/WEEK
     Dates: start: 20061120

REACTIONS (1)
  - INTRACRANIAL PRESSURE INCREASED [None]
